FAERS Safety Report 9648971 (Version 2)
Quarter: 2014Q2

REPORT INFORMATION
  Report Type: Spontaneous
  Country: US (occurrence: None)
  Receive Date: 20131018
  Receipt Date: 20140421
  Transmission Date: 20141212
  Serious: No
  Sender: FDA-Public Use
  Company Number: AEGR000075

PATIENT
  Age: 72 Year
  Sex: Female
  Weight: 60.8 kg

DRUGS (2)
  1. JUXTAPID [Suspect]
     Indication: BLOOD CHOLESTEROL INCREASED
     Route: 048
     Dates: start: 201308
  2. LISINOPRIL [Concomitant]

REACTIONS (6)
  - Flank pain [None]
  - Abdominal pain [None]
  - Drug ineffective for unapproved indication [None]
  - Off label use [None]
  - Abdominal pain upper [None]
  - Weight decreased [None]
